FAERS Safety Report 7524026-4 (Version None)
Quarter: 2011Q2

REPORT INFORMATION
  Report Type: 
  Country: None (occurrence: None)
  Receive Date: 20110604
  Receipt Date: 20110520
  Transmission Date: 20111010
  Serious: Yes (Other)
  Sender: FDA-Public Use
  Company Number: JP-WATSON-2011-06906

PATIENT
  Age: 58 Year
  Sex: Male

DRUGS (6)
  1. CAPECITABINE [Suspect]
     Indication: RECTAL CANCER
     Dosage: UNK
  2. IRINOTECAN HYDROCHLORIDE [Suspect]
     Indication: RECTAL CANCER
     Dosage: UNK
  3. LEUCOVORIN CALCIUM [Suspect]
     Indication: RECTAL CANCER
     Dosage: UNK
  4. FLUOROURACIL [Suspect]
     Indication: RECTAL CANCER
     Dosage: UNK
  5. OXALIPLATIN [Suspect]
     Indication: RECTAL CANCER
     Dosage: UNK
  6. BEVACIZUMAB [Suspect]
     Indication: RECTAL CANCER
     Dosage: UNK

REACTIONS (1)
  - INTERSTITIAL LUNG DISEASE [None]
